FAERS Safety Report 12691170 (Version 1)
Quarter: 2016Q3

REPORT INFORMATION
  Report Type: Other
  Country: US (occurrence: US)
  Receive Date: 20160826
  Receipt Date: 20160826
  Transmission Date: 20161109
  Serious: Yes (Other)
  Sender: FDA-Public Use
  Company Number: US-SHIRE-US201610805

PATIENT
  Age: 22 Year
  Sex: Female

DRUGS (1)
  1. VYVANSE [Suspect]
     Active Substance: LISDEXAMFETAMINE DIMESYLATE
     Indication: ATTENTION DEFICIT/HYPERACTIVITY DISORDER
     Dosage: UNK, UNKNOWN
     Route: 048

REACTIONS (9)
  - Psychiatric symptom [Unknown]
  - Social avoidant behaviour [Unknown]
  - Intentional self-injury [Unknown]
  - Feeling abnormal [Unknown]
  - Fear [Unknown]
  - Suicidal ideation [Unknown]
  - Feelings of worthlessness [Unknown]
  - Performance status decreased [Unknown]
  - Mood altered [Unknown]
